FAERS Safety Report 6654475-8 (Version None)
Quarter: 2010Q1

REPORT INFORMATION
  Report Type: 
  Country: None (occurrence: None)
  Receive Date: 20100326
  Receipt Date: 20100322
  Transmission Date: 20100710
  Serious: Yes (Hospitalization)
  Sender: FDA-Public Use
  Company Number: US-JNJFOC-20100306793

PATIENT
  Age: 24 Year
  Sex: Male

DRUGS (1)
  1. FENTANYL [Suspect]
     Indication: DRUG USE FOR UNKNOWN INDICATION
     Route: 055

REACTIONS (4)
  - ACUTE RESPIRATORY DISTRESS SYNDROME [None]
  - INTENTIONAL DRUG MISUSE [None]
  - LUNG DISORDER [None]
  - RESPIRATORY DISTRESS [None]
